FAERS Safety Report 9461383 (Version 2)
Quarter: 2013Q3

REPORT INFORMATION
  Report Type: Spontaneous
  Country: JP (occurrence: JP)
  Receive Date: 20130816
  Receipt Date: 20130821
  Transmission Date: 20140515
  Serious: Yes (Death)
  Sender: FDA-Public Use
  Company Number: JP-BAYER-2013-091357

PATIENT
  Age: 73 Year
  Sex: Male
  Weight: 46 kg

DRUGS (12)
  1. STIVARGA [Suspect]
     Indication: COLON CANCER
     Dosage: 160 MG, QD
     Route: 048
     Dates: start: 20130722, end: 20130808
  2. LEUPLIN [Concomitant]
     Indication: PROSTATE CANCER
     Dosage: UNK
  3. FENTANYL CITRATE [Concomitant]
     Indication: PAIN
     Dosage: DAILY DOSE 2 MG
     Route: 062
     Dates: start: 20110926, end: 20130808
  4. AMLODIPINE BESILATE [Concomitant]
     Indication: HYPERTENSION
     Dosage: DAILY DOSE 5 MG
     Route: 048
     Dates: start: 20110215, end: 20130808
  5. ALLELOCK [Concomitant]
     Indication: RASH
     Dosage: DAILY DOSE 10 MG
     Route: 048
     Dates: start: 20110315, end: 20130808
  6. TAKEPRON [Concomitant]
     Indication: GASTRIC ULCER
     Dosage: DAILY DOSE 30 MG
     Route: 048
     Dates: start: 20110926, end: 20130808
  7. LOXONIN [Concomitant]
     Indication: PAIN
     Dosage: DAILY DOSE 180 MG
     Route: 048
     Dates: start: 20110221, end: 20130808
  8. DIOVAN [Concomitant]
     Indication: HYPERTENSION
     Dosage: DAILY DOSE 40 MG
     Route: 048
     Dates: start: 20130725, end: 20130808
  9. MYONAL [Concomitant]
     Indication: PAIN
     Dosage: DAILY DOSE 100 MG
     Route: 048
     Dates: start: 20130708, end: 20130808
  10. METHYCOBAL [Concomitant]
     Indication: NEUROPATHY PERIPHERAL
     Dosage: DAILY DOSE 1 MG
     Route: 048
     Dates: start: 20110913, end: 20130808
  11. MUCOSTA [Concomitant]
     Indication: GASTRIC ULCER
     Dosage: DAILY DOSE 20 MG
     Route: 048
     Dates: start: 20120611, end: 20130808
  12. FAD [Concomitant]
     Indication: STOMATITIS
     Dosage: DAILY DOSE 20 MG
     Route: 048
     Dates: start: 20130708, end: 20130808

REACTIONS (3)
  - Pneumonia [Fatal]
  - Disseminated intravascular coagulation [Fatal]
  - Hypertension [Recovering/Resolving]
